FAERS Safety Report 17606931 (Version 1)
Quarter: 2020Q1

REPORT INFORMATION
  Report Type: Spontaneous
  Country: FR (occurrence: FR)
  Receive Date: 20200331
  Receipt Date: 20200331
  Transmission Date: 20200409
  Serious: Yes (Other)
  Sender: FDA-Public Use
  Company Number: FR-ELI_LILLY_AND_COMPANY-FR202003010917

PATIENT
  Age: 66 Year
  Sex: Male
  Weight: 52 kg

DRUGS (11)
  1. ALIMTA [Suspect]
     Active Substance: PEMETREXED DISODIUM
     Indication: LUNG NEOPLASM MALIGNANT
     Dosage: 890 MG, UNKNOWN
     Route: 042
     Dates: start: 20200129, end: 20200129
  2. KEYTRUDA [Suspect]
     Active Substance: PEMBROLIZUMAB
     Indication: LUNG NEOPLASM MALIGNANT
     Dosage: 200 MG, UNKNOWN
     Route: 042
     Dates: start: 20200129, end: 20200129
  3. NICOPATCHLIB [Concomitant]
     Active Substance: NICOTINE
  4. IMOVANE [Concomitant]
     Active Substance: ZOPICLONE
  5. OROZAMUDOL [Concomitant]
     Active Substance: TRAMADOL
  6. CARBOPLATIN ACCORD [Suspect]
     Active Substance: CARBOPLATIN
     Indication: LUNG NEOPLASM MALIGNANT
     Dosage: 544.19 MG, UNKNOWN
     Route: 042
     Dates: start: 20200129, end: 20200129
  7. ZAMUDOL LP [Concomitant]
     Active Substance: TRAMADOL HYDROCHLORIDE
  8. PANTOPRAZOLE [Concomitant]
     Active Substance: PANTOPRAZOLE
  9. PRIMPERAN [Concomitant]
     Active Substance: METOCLOPRAMIDE HYDROCHLORIDE
  10. PARACETAMOL [Concomitant]
     Active Substance: ACETAMINOPHEN
  11. SPASFON [PHLOROGLUCINOL] [Concomitant]
     Active Substance: PHLOROGLUCINOL

REACTIONS (6)
  - Anaemia [Recovering/Resolving]
  - Thrombocytopenia [Recovering/Resolving]
  - Erythropenia [Recovering/Resolving]
  - General physical health deterioration [Recovering/Resolving]
  - Neutropenia [Recovering/Resolving]
  - Off label use [Unknown]

NARRATIVE: CASE EVENT DATE: 202002
